FAERS Safety Report 5230513-4 (Version None)
Quarter: 2007Q1

REPORT INFORMATION
  Report Type: 
  Country: None (occurrence: None)
  Receive Date: 20070202
  Receipt Date: 20070122
  Transmission Date: 20070707
  Serious: Yes (Other)
  Sender: FDA-Public Use
  Company Number: 235461

PATIENT
  Age: 71 Year
  Sex: Female

DRUGS (10)
  1. MABTHERA (RITUXIMAB) CONC FOR SOLUTION FOR INFUSION [Suspect]
     Indication: RHEUMATOID ARTHRITIS
     Dosage: 500 MG, INTRAVENOUS
     Route: 042
     Dates: start: 20060701
  2. ADALIMUMAB (ADALIMUMAB) [Suspect]
     Indication: RHEUMATOID ARTHRITIS
     Dosage: 40 MG, 2/WEEK, SUBCUTANEOUS
     Route: 058
     Dates: start: 20030101, end: 20050101
  3. ENBREL [Suspect]
     Indication: RHEUMATOID ARTHRITIS
     Dosage: 25 MG, 1/WEEK, SUBCUTANEOUS
     Route: 058
     Dates: start: 20030101, end: 20030901
  4. HYDROXYCHLOROQUINE (HYDROXYCHLOROQUINE SULFATE) [Concomitant]
  5. METHOTREXATE ^LEDERLE^ (METHOTREXATE) [Concomitant]
  6. WARFARIN SODIUM [Concomitant]
  7. ATENOLOL [Concomitant]
  8. ZOCOR [Concomitant]
  9. PREDNISOLONE [Concomitant]
  10. PLAQUENIL [Concomitant]

REACTIONS (1)
  - BREAST CANCER FEMALE [None]
